FAERS Safety Report 4598293-3 (Version None)
Quarter: 2005Q1

REPORT INFORMATION
  Report Type: 
  Country: None (occurrence: None)
  Receive Date: 20050301
  Receipt Date: 20050301
  Transmission Date: 20050727
  Serious: Yes (Hospitalization)
  Sender: FDA-Public Use
  Company Number: None

PATIENT
  Age: 57 Year
  Sex: Male
  Weight: 95.2554 kg

DRUGS (3)
  1. ENBREL [Suspect]
     Indication: PSORIATIC ARTHROPATHY
     Dosage: 50MG  G  WEEK
     Dates: start: 20031201, end: 20041001
  2. RELAFEN [Concomitant]
  3. PRILOSEC [Concomitant]

REACTIONS (1)
  - GRANULOMA [None]
